FAERS Safety Report 7482411-3 (Version None)
Quarter: 2011Q2

REPORT INFORMATION
  Report Type: 
  Country: None (occurrence: None)
  Receive Date: 20110516
  Receipt Date: 20110512
  Transmission Date: 20111010
  Serious: Yes (Other)
  Sender: FDA-Public Use
  Company Number: US-PFIZER INC-2011076603

PATIENT
  Sex: Male
  Weight: 65.76 kg

DRUGS (3)
  1. ADVIL LIQUI-GELS [Suspect]
     Indication: BACK PAIN
     Dosage: UNK
     Dates: start: 20110301, end: 20110405
  2. METOPROLOL [Concomitant]
     Indication: HYPERTENSION
     Dosage: 50 MG, 2X/DAY
  3. VALTURNA [Concomitant]
     Indication: HYPERTENSION
     Dosage: 150 MG, 2X/DAY

REACTIONS (2)
  - HYPERTENSION [None]
  - DIZZINESS [None]
